FAERS Safety Report 7755409-5 (Version None)
Quarter: 2011Q3

REPORT INFORMATION
  Report Type: 
  Country: None (occurrence: None)
  Receive Date: 20110916
  Receipt Date: 20110908
  Transmission Date: 20111222
  Serious: Yes (Other)
  Sender: FDA-Public Use
  Company Number: JM-JNJFOC-20101001405

PATIENT
  Age: 25 Year
  Sex: Female
  Weight: 73.1 kg

DRUGS (4)
  1. LITHIUM CARBONATE [Suspect]
     Indication: BIPOLAR DISORDER
     Route: 065
  2. COGENTIN [Suspect]
     Indication: BIPOLAR DISORDER
     Route: 065
  3. HALDOL [Suspect]
     Indication: BIPOLAR DISORDER
     Route: 065
  4. LITHIUM CARBONATE [Suspect]
     Route: 065

REACTIONS (3)
  - PLACENTAL DISORDER [None]
  - MATERNAL EXPOSURE DURING PREGNANCY [None]
  - LIPIDS DECREASED [None]
